FAERS Safety Report 16377799 (Version 1)
Quarter: 2019Q2

REPORT INFORMATION
  Report Type: Spontaneous
  Country: US (occurrence: US)
  Receive Date: 20190425
  Receipt Date: 20190425
  Transmission Date: 20190711
  Serious: Yes (Hospitalization)
  Sender: FDA-Public Use
  Company Number: None

PATIENT
  Age: 81 Year
  Sex: Male

DRUGS (14)
  1. PREDNISONE. [Concomitant]
     Active Substance: PREDNISONE
  2. FUROSEMIDE. [Concomitant]
     Active Substance: FUROSEMIDE
  3. TAMSULOSIN [Concomitant]
     Active Substance: TAMSULOSIN
  4. IMATINIB MES TAB 400MG [Suspect]
     Active Substance: IMATINIB MESYLATE
     Indication: CHRONIC MYELOID LEUKAEMIA
     Route: 048
     Dates: start: 20140620
  5. PANTOPRAZOLE [Concomitant]
     Active Substance: PANTOPRAZOLE
  6. CALCITRIOL. [Concomitant]
     Active Substance: CALCITRIOL
  7. METOPROLOL. [Concomitant]
     Active Substance: METOPROLOL
  8. FLONASE [Concomitant]
     Active Substance: FLUTICASONE PROPIONATE
  9. ATORVASTATIN [Concomitant]
     Active Substance: ATORVASTATIN
  10. PYRIDOSTIGMINE [Concomitant]
     Active Substance: PYRIDOSTIGMINE
  11. VITAMIN D3 [Concomitant]
     Active Substance: CHOLECALCIFEROL
  12. NATEGLINIDE. [Concomitant]
     Active Substance: NATEGLINIDE
  13. LEVOTHYROXINE. [Concomitant]
     Active Substance: LEVOTHYROXINE
  14. ALLOPURINOL. [Concomitant]
     Active Substance: ALLOPURINOL

REACTIONS (4)
  - Fall [None]
  - Skin laceration [None]
  - Therapy cessation [None]
  - Cellulitis [None]
